FAERS Safety Report 24110915 (Version 3)
Quarter: 2024Q4

REPORT INFORMATION
  Report Type: Spontaneous
  Country: US (occurrence: US)
  Receive Date: 20240718
  Receipt Date: 20241022
  Transmission Date: 20250114
  Serious: Yes (Other)
  Sender: SANOFI AVENTIS
  Company Number: US-SA-SAC20240715001367

PATIENT
  Sex: Female
  Weight: 83 kg

DRUGS (35)
  1. DUPIXENT [Suspect]
     Active Substance: DUPILUMAB
     Indication: Asthma
     Dosage: 300 MG, QOW
     Route: 058
  2. BREZTRI [Concomitant]
     Active Substance: BUDESONIDE\FORMOTEROL\GLYCOPYRROLATE
  3. MUCINEX [Concomitant]
     Active Substance: GUAIFENESIN
  4. MUCINEX [Concomitant]
     Active Substance: GUAIFENESIN
  5. ASTEPRO [Concomitant]
     Active Substance: AZELASTINE HYDROCHLORIDE
  6. ASTEPRO [Concomitant]
     Active Substance: AZELASTINE HYDROCHLORIDE
  7. VALSARTAN [Concomitant]
     Active Substance: VALSARTAN
  8. VALSARTAN [Concomitant]
     Active Substance: VALSARTAN
  9. LEVSIN SL [Concomitant]
     Active Substance: HYOSCYAMINE SULFATE
  10. ALBUTEROL SULFATE [Concomitant]
     Active Substance: ALBUTEROL SULFATE
  11. VITAMIN D3 [Concomitant]
     Active Substance: CHOLECALCIFEROL
  12. PREVACID [Concomitant]
     Active Substance: LANSOPRAZOLE
  13. LIDOCAINE [Concomitant]
     Active Substance: LIDOCAINE
  14. EPINEPHRINE [Concomitant]
     Active Substance: EPINEPHRINE
     Dosage: UNK
  15. DIPHENHYDRAMINE HYDROCHLORIDE [Concomitant]
     Active Substance: DIPHENHYDRAMINE HYDROCHLORIDE
  16. GAMMAGARD LIQUID [Concomitant]
     Active Substance: HUMAN IMMUNOGLOBULIN G
  17. SYNTHROID [Concomitant]
     Active Substance: LEVOTHYROXINE SODIUM
     Dosage: UNK
  18. GOODY^S EXTRA STRENGTH [Concomitant]
  19. ROSUVASTATIN CALCIUM [Concomitant]
     Active Substance: ROSUVASTATIN CALCIUM
  20. ROSUVASTATIN CALCIUM [Concomitant]
     Active Substance: ROSUVASTATIN CALCIUM
  21. SINGULAIR [Concomitant]
     Active Substance: MONTELUKAST SODIUM
  22. SINGULAIR [Concomitant]
     Active Substance: MONTELUKAST SODIUM
  23. BUDESONIDE [Concomitant]
     Active Substance: BUDESONIDE
     Indication: Nasal congestion
     Dosage: UNK
  24. FLUTICASONE [Concomitant]
     Active Substance: FLUTICASONE
  25. FLUTICASONE [Concomitant]
     Active Substance: FLUTICASONE
  26. NITROGLYCERIN [Concomitant]
     Active Substance: NITROGLYCERIN
  27. SODIUM CHLORIDE [Concomitant]
     Active Substance: SODIUM CHLORIDE
  28. ACETAMINOPHEN [Concomitant]
     Active Substance: ACETAMINOPHEN
  29. LEVSIN [Concomitant]
     Active Substance: HYOSCYAMINE SULFATE
  30. ASPIRIN [Concomitant]
     Active Substance: ASPIRIN
  31. VITAMINS NOS [Concomitant]
     Active Substance: VITAMINS
  32. PREDNISONE [Concomitant]
     Active Substance: PREDNISONE
     Dosage: UNK
  33. AZITHROMYCIN [Concomitant]
     Active Substance: AZITHROMYCIN
     Dosage: UNK
  34. NYSTATIN [Concomitant]
     Active Substance: NYSTATIN
     Dosage: UNK
  35. SODIUM CHLORIDE [Concomitant]
     Active Substance: SODIUM CHLORIDE
     Dosage: UNK

REACTIONS (11)
  - Polymyalgia rheumatica [Unknown]
  - Breath sounds abnormal [Recovering/Resolving]
  - Respiratory tract infection [Recovering/Resolving]
  - Peripheral swelling [Recovered/Resolved]
  - Productive cough [Recovering/Resolving]
  - Sleep disorder due to a general medical condition [Unknown]
  - Dyspnoea exertional [Recovering/Resolving]
  - Sinusitis [Unknown]
  - Wheezing [Recovering/Resolving]
  - Back pain [Unknown]
  - Arthralgia [Unknown]
